FAERS Safety Report 18384592 (Version 1)
Quarter: 2020Q4

REPORT INFORMATION
  Report Type: Spontaneous
  Country: US (occurrence: US)
  Receive Date: 20201014
  Receipt Date: 20201014
  Transmission Date: 20210114
  Serious: Yes (Death, Other)
  Sender: FDA-Public Use
  Company Number: US-009507513-2010USA003242

PATIENT
  Age: 61 Year
  Sex: Female
  Weight: 66 kg

DRUGS (1)
  1. DECADRON [Suspect]
     Active Substance: DEXAMETHASONE
     Dosage: TAKE 2 MG BY MOUTH, TAKE 1 TAB BY MOUTH EVERY 12 HRS X 5 DAYS, THEN 1 TABLET ONCE A DAY X 5 DAYS, TH
     Route: 048
     Dates: end: 202008

REACTIONS (19)
  - Anxiety [Unknown]
  - Back pain [Unknown]
  - Rash papular [Unknown]
  - Asthenia [Unknown]
  - Pulmonary oedema [Unknown]
  - Pleural effusion [Unknown]
  - Increased tendency to bruise [Unknown]
  - Mental disorder [Unknown]
  - Thrombocytopenia [Unknown]
  - Fibrin D dimer increased [Unknown]
  - Sinus bradycardia [Unknown]
  - Gait disturbance [Unknown]
  - Infection [Unknown]
  - Breast cancer metastatic [Fatal]
  - Pericardial effusion [Unknown]
  - Dyspnoea exertional [Unknown]
  - Cranial nerve disorder [Unknown]
  - Pain [Recovering/Resolving]
  - Malaise [Unknown]

NARRATIVE: CASE EVENT DATE: 20200727
